FAERS Safety Report 7938905-7 (Version None)
Quarter: 2011Q4

REPORT INFORMATION
  Report Type: 
  Country: None (occurrence: None)
  Receive Date: 20111124
  Receipt Date: 20111115
  Transmission Date: 20120403
  Serious: No
  Sender: FDA-Public Use
  Company Number: JP-JNJFOC-20111108394

PATIENT

DRUGS (3)
  1. VOLTAREN [Concomitant]
     Route: 054
  2. FENTANYL-100 [Suspect]
     Indication: PAIN
     Route: 062
  3. OXYCODONE HYDROCHLORIDE [Concomitant]
     Route: 048

REACTIONS (2)
  - INAPPROPRIATE SCHEDULE OF DRUG ADMINISTRATION [None]
  - NAUSEA [None]
